FAERS Safety Report 12296059 (Version 3)
Quarter: 2016Q2

REPORT INFORMATION
  Report Type: Spontaneous
  Country: US (occurrence: US)
  Receive Date: 20160422
  Receipt Date: 20160623
  Transmission Date: 20160815
  Serious: No
  Sender: FDA-Public Use
  Company Number: US-TAKEDA-2016MPI002917

PATIENT
  Sex: Female
  Weight: 124.9 kg

DRUGS (2)
  1. NINLARO [Suspect]
     Active Substance: IXAZOMIB
     Indication: PLASMA CELL MYELOMA
     Dosage: 4 MG, UNK
     Route: 048
     Dates: start: 20160218
  2. REVLIMID [Suspect]
     Active Substance: LENALIDOMIDE
     Indication: PLASMA CELL MYELOMA
     Dosage: UNK
     Route: 065

REACTIONS (8)
  - White blood cell count decreased [Recovering/Resolving]
  - Abdominal tenderness [Unknown]
  - Peripheral swelling [Not Recovered/Not Resolved]
  - Constipation [Unknown]
  - Platelet count decreased [Recovering/Resolving]
  - Rash [Unknown]
  - Muscular weakness [Unknown]
  - Hypoaesthesia [Recovered/Resolved]
